FAERS Safety Report 12305380 (Version 1)
Quarter: 2016Q2

REPORT INFORMATION
  Report Type: Spontaneous
  Country: US (occurrence: US)
  Receive Date: 20160426
  Receipt Date: 20160426
  Transmission Date: 20160815
  Serious: Yes (Other)
  Sender: FDA-Public Use
  Company Number: US-MDT-ADR-2016-00734

PATIENT
  Age: 17 Year
  Sex: Male

DRUGS (5)
  1. TIZANADINE [Suspect]
     Active Substance: TIZANIDINE
     Dosage: 2 MG 1 TAB AT BEDTIME AND ?? TAB THREE TIMES A DAY (TID) AS NEEDED
  2. CLONAZEPAM. [Suspect]
     Active Substance: CLONAZEPAM
     Dosage: 1 MG BID
  3. BACLOFEN. [Suspect]
     Active Substance: BACLOFEN
     Route: 037
  4. ARTANE [Suspect]
     Active Substance: TRIHEXYPHENIDYL HYDROCHLORIDE
     Dosage: 5 MG 2 TABS AM 2 TABS NOON ONE TAB EVENING
  5. BACLOFEN. [Suspect]
     Active Substance: BACLOFEN
     Dosage: 20 MG  QID AS NEEDED

REACTIONS (1)
  - Infection [Unknown]
